FAERS Safety Report 8177409-6 (Version None)
Quarter: 2012Q1

REPORT INFORMATION
  Report Type: 
  Country: None (occurrence: None)
  Receive Date: 20120301
  Receipt Date: 20120224
  Transmission Date: 20120608
  Serious: Yes (Other)
  Sender: FDA-Public Use
  Company Number: JP-PFIZER INC-2012035238

PATIENT
  Age: 81 Year
  Sex: Male

DRUGS (2)
  1. ZITHROMAX [Suspect]
     Indication: PNEUMONIA
     Dosage: 500 MG, 1X/DAY
     Route: 048
     Dates: start: 20111227, end: 20111229
  2. FLOMOX [Concomitant]
     Indication: PNEUMONIA
     Dosage: UNK
     Dates: start: 20111227, end: 20111229

REACTIONS (1)
  - RHABDOMYOLYSIS [None]
